FAERS Safety Report 6967281-1 (Version None)
Quarter: 2010Q3

REPORT INFORMATION
  Report Type: 
  Country: None (occurrence: None)
  Receive Date: 20100907
  Receipt Date: 20100825
  Transmission Date: 20110219
  Serious: No
  Sender: FDA-Public Use
  Company Number: US-JNJFOC-20100809128

PATIENT
  Sex: Female

DRUGS (6)
  1. FENTANYL-100 [Suspect]
     Indication: BACK PAIN
     Route: 062
  2. FENTANYL CITRATE [Suspect]
     Indication: BACK PAIN
     Route: 062
  3. ADVAIR DISKUS 100/50 [Concomitant]
     Indication: ASTHMA
     Route: 055
  4. UNKNOWN MEDICATION [Concomitant]
     Indication: ASTHMA
     Dosage: AS NEEDED
     Route: 055
  5. SOMA [Concomitant]
     Indication: MUSCLE RELAXANT THERAPY
     Route: 048
  6. HYDROCODONE [Concomitant]
     Indication: PAIN
     Dosage: 10/325 MG
     Route: 048

REACTIONS (2)
  - PRODUCT ADHESION ISSUE [None]
  - WRONG TECHNIQUE IN DRUG USAGE PROCESS [None]
